FAERS Safety Report 23208425 (Version 1)
Quarter: 2023Q4

REPORT INFORMATION
  Report Type: Spontaneous
  Country: BR (occurrence: BR)
  Receive Date: 20231121
  Receipt Date: 20231121
  Transmission Date: 20240110
  Serious: Yes (Other)
  Sender: FDA-Public Use
  Company Number: BR-CHEPLA-2023014629

PATIENT
  Age: 63 Year
  Sex: Male
  Weight: 75 kg

DRUGS (3)
  1. CLONAZEPAM [Suspect]
     Active Substance: CLONAZEPAM
     Indication: Sleep disorder
     Dosage: DROPS, ADMINISTERS IN THE TONGUE, 30/40 YEARS AGO, ONGOING?HE REPORTED THAT WHEN HE GETS NERVOUS...
  2. CLONAZEPAM [Suspect]
     Active Substance: CLONAZEPAM
     Indication: Sleep disorder
     Dosage: SUBLINGUAL TABLET?, 0.25 MG
     Route: 060
  3. MELATONIN [Concomitant]
     Active Substance: MELATONIN
     Dosage: ONGOING?DAILY DOSE: 300 MILLIGRAM
     Route: 048

REACTIONS (7)
  - Upper limb fracture [Not Recovered/Not Resolved]
  - Surgery [Unknown]
  - Dermatitis atopic [Not Recovered/Not Resolved]
  - Road traffic accident [Unknown]
  - Nervousness [Unknown]
  - Endoscopy [Unknown]
  - Product use in unapproved indication [Not Recovered/Not Resolved]
